FAERS Safety Report 4989794-4 (Version None)
Quarter: 2006Q2

REPORT INFORMATION
  Report Type: 
  Country: None (occurrence: None)
  Receive Date: 20060428
  Receipt Date: 20060419
  Transmission Date: 20061013
  Serious: Yes (Life-Threatening, Hospitalization, Other)
  Sender: FDA-Public Use
  Company Number: 2006050177

PATIENT
  Age: 55 Year
  Sex: Female
  Weight: 63.5 kg

DRUGS (10)
  1. LIPITOR [Suspect]
     Indication: HYPERCHOLESTEROLAEMIA
     Dosage: 10 MG (10 MG 1 IN 1 D) ORAL
     Route: 048
     Dates: start: 20060228, end: 20060322
  2. BOUFUUTSHUUSHOUSAN (HERBAL EXTRACTS NOS) [Suspect]
     Indication: ILL-DEFINED DISORDER
     Dosage: 5 GRAM (2.5 GRAM 2 IN 1 D) ORAL
     Route: 048
     Dates: start: 20060228, end: 20060322
  3. PROTHIADEN [Concomitant]
  4. PAXIL [Concomitant]
  5. LEXOTAN (BROMAZEPAM) [Concomitant]
  6. DEPAKENE [Concomitant]
  7. SYMMETREL [Concomitant]
  8. AMOBAN (ZOPICLONE) [Concomitant]
  9. ROHYPNOL (FLUNITRAZEPAM) [Concomitant]
  10. PYRETHIA (PROMETHAZINE HYDROCHLORIDE) [Concomitant]

REACTIONS (4)
  - INSOMNIA [None]
  - INTERSTITIAL LUNG DISEASE [None]
  - LIVER DISORDER [None]
  - RESPIRATORY FAILURE [None]
